FAERS Safety Report 8444916-8 (Version None)
Quarter: 2012Q2

REPORT INFORMATION
  Report Type: 
  Country: None (occurrence: None)
  Receive Date: 20120611
  Receipt Date: 20120531
  Transmission Date: 20120825
  Serious: Yes (Other)
  Sender: FDA-Public Use
  Company Number: ACO_29116_2012

PATIENT
  Sex: Female

DRUGS (5)
  1. COPAXONE [Concomitant]
  2. AMANTADINE HCL [Concomitant]
  3. AMPYRA [Suspect]
     Indication: PRODUCT USED FOR UNKNOWN INDICATION
  4. ASCORBIC ACID [Concomitant]
  5. VITAMIN D [Concomitant]

REACTIONS (1)
  - UROSTOMY [None]
